FAERS Safety Report 8294190-0 (Version None)
Quarter: 2012Q2

REPORT INFORMATION
  Report Type: 
  Country: None (occurrence: None)
  Receive Date: 20120418
  Receipt Date: 20120412
  Transmission Date: 20120825
  Serious: Yes (Other)
  Sender: FDA-Public Use
  Company Number: PHHY2012FR025906

PATIENT
  Sex: Female
  Weight: 69 kg

DRUGS (1)
  1. GILENYA [Suspect]
     Dosage: 1 DF, QD
     Dates: start: 20111121, end: 20120318

REACTIONS (3)
  - ANGIOEDEMA [None]
  - URTICARIA [None]
  - PRURITUS [None]
